FAERS Safety Report 5390503-8 (Version None)
Quarter: 2007Q3

REPORT INFORMATION
  Report Type: 
  Country: None (occurrence: None)
  Receive Date: 20070718
  Receipt Date: 20070326
  Transmission Date: 20080115
  Serious: No
  Sender: FDA-Public Use
  Company Number: US-KINGPHARMUSA00001-K200700362

PATIENT

DRUGS (4)
  1. LEVOXYL [Suspect]
     Indication: HYPOTHYROIDISM
     Dosage: UNK, QD
     Route: 048
     Dates: start: 20061101
  2. DIOVAN    /01319601/ [Concomitant]
     Indication: HYPERTENSION
  3. SEREVENT [Concomitant]
     Indication: ASTHMA
  4. SINGULAIR /01362601/ [Concomitant]
     Indication: ASTHMA
     Dosage: 10 MG, QD

REACTIONS (3)
  - DRY MOUTH [None]
  - DYSGEUSIA [None]
  - ORAL DISCOMFORT [None]
